FAERS Safety Report 6288740-3 (Version None)
Quarter: 2009Q3

REPORT INFORMATION
  Report Type: 
  Country: None (occurrence: None)
  Receive Date: 20090729
  Receipt Date: 20090723
  Transmission Date: 20100115
  Serious: Yes (Hospitalization)
  Sender: FDA-Public Use
  Company Number: US-GILEAD-2009-0023052

PATIENT
  Sex: Female
  Weight: 81.72 kg

DRUGS (15)
  1. LETAIRIS [Suspect]
     Indication: PULMONARY ARTERIAL HYPERTENSION
  2. NITROGLYCERIN [Concomitant]
  3. MIRAPEX [Concomitant]
  4. METOPROLOL [Concomitant]
  5. HYDROXYUREA [Concomitant]
  6. STALEVO 100 [Concomitant]
  7. DIOVAN [Concomitant]
  8. PRAVASTATIN [Concomitant]
  9. GABAPENTIN [Concomitant]
  10. NEXIUM [Concomitant]
  11. GLIPIZIDE [Concomitant]
  12. WARFARIN SODIUM [Concomitant]
  13. NIASPAN [Concomitant]
  14. AZILECT [Concomitant]
  15. MYOCASAPAN [Concomitant]

REACTIONS (1)
  - PNEUMONIA [None]
